FAERS Safety Report 23806413 (Version 4)
Quarter: 2024Q3

REPORT INFORMATION
  Report Type: Report from Study
  Country: FR (occurrence: FR)
  Receive Date: 20240502
  Receipt Date: 20240704
  Transmission Date: 20241016
  Serious: Yes (Hospitalization)
  Sender: ABBVIE
  Company Number: FR-ABBVIE-5737277

PATIENT
  Age: 51 Year
  Sex: Male
  Weight: 84 kg

DRUGS (7)
  1. UPADACITINIB [Suspect]
     Active Substance: UPADACITINIB
     Indication: Axial spondyloarthritis
     Route: 048
     Dates: start: 20231201, end: 20240104
  2. TRAMADOL KRKA LP [Concomitant]
     Indication: Axial spondyloarthritis
     Route: 048
  3. TRAMADOL LIBRAPHARM [Concomitant]
     Indication: Axial spondyloarthritis
     Dosage: OCCASIONAL
     Route: 048
  4. ALLOPURINOL [Concomitant]
     Active Substance: ALLOPURINOL
     Indication: Gout
     Route: 048
  5. AMITRIPTYLINE HYDROCHLORIDE [Concomitant]
     Active Substance: AMITRIPTYLINE HYDROCHLORIDE
     Indication: Axial spondyloarthritis
     Dosage: OCCASIONAL
     Route: 002
  6. INDOMETHACIN [Concomitant]
     Active Substance: INDOMETHACIN
     Indication: Axial spondyloarthritis
     Dosage: MG, CONTINUOUS
     Route: 048
  7. INDOMETHACIN [Concomitant]
     Active Substance: INDOMETHACIN
     Indication: Axial spondyloarthritis
     Dosage: MG, CONTINUOUS
     Route: 048

REACTIONS (1)
  - Intestinal obstruction [Recovered/Resolved]

NARRATIVE: CASE EVENT DATE: 20231219
